FAERS Safety Report 22267109 (Version 1)
Quarter: 2023Q2

REPORT INFORMATION
  Report Type: Spontaneous
  Country: US (occurrence: US)
  Receive Date: 20230428
  Receipt Date: 20230428
  Transmission Date: 20230722
  Serious: No
  Sender: FDA-Public Use
  Company Number: US-TEVA-2023-US-2879407

PATIENT

DRUGS (1)
  1. LETROZOLE [Suspect]
     Active Substance: LETROZOLE
     Indication: Product used for unknown indication
     Dosage: 2.5 MG

REACTIONS (6)
  - Weight increased [Unknown]
  - Fatigue [Unknown]
  - Visual impairment [Unknown]
  - Mental disorder [Unknown]
  - Emotional disorder [Unknown]
  - Laboratory test abnormal [Unknown]
